FAERS Safety Report 16233505 (Version 1)
Quarter: 2019Q2

REPORT INFORMATION
  Report Type: Spontaneous
  Country: US (occurrence: US)
  Receive Date: 20190319
  Receipt Date: 20190319
  Transmission Date: 20190711
  Serious: No
  Sender: FDA-Public Use
  Company Number: None

PATIENT
  Age: 74 Year
  Sex: Female
  Weight: 70.76 kg

DRUGS (8)
  1. METOPROLOL TARTRATE. [Concomitant]
     Active Substance: METOPROLOL TARTRATE
  2. ARMOUR THYROID [Concomitant]
     Active Substance: THYROID, PORCINE
  3. LIDODERM [Concomitant]
     Active Substance: LIDOCAINE
  4. TIZANIDINE. [Concomitant]
     Active Substance: TIZANIDINE
  5. LEVOTHYROXINE/LIOTHYRONINE [Suspect]
     Active Substance: LEVOTHYROXINE\LIOTHYRONINE
     Indication: HYPOTHYROIDISM
     Dosage: ?          QUANTITY:90 DF DOSAGE FORM;?
     Route: 048
     Dates: start: 20190306
  6. PENNSAID [Concomitant]
     Active Substance: DICLOFENAC SODIUM
  7. TRAZODONE [Concomitant]
     Active Substance: TRAZODONE HYDROCHLORIDE
  8. CLONAZEPAM. [Concomitant]
     Active Substance: CLONAZEPAM

REACTIONS (2)
  - Eye swelling [None]
  - Recalled product administered [None]
